FAERS Safety Report 6036498-5 (Version None)
Quarter: 2009Q1

REPORT INFORMATION
  Report Type: 
  Country: None (occurrence: None)
  Receive Date: 20090112
  Receipt Date: 20090105
  Transmission Date: 20090719
  Serious: Yes (Hospitalization)
  Sender: FDA-Public Use
  Company Number: 2008SP024258

PATIENT
  Sex: Female

DRUGS (6)
  1. PEG-INTRON [Suspect]
     Indication: HEPATITIS C
     Dosage: 100 MCG QW
     Dates: start: 20060201
  2. RIBAVIRIN [Suspect]
     Indication: HEPATITIS C
     Dosage: 1000 MG QD
     Dates: start: 20060201
  3. TENOFOVIR [Concomitant]
  4. EMTRICITABINE [Concomitant]
  5. ATAZANAVIR [Concomitant]
  6. RITONAVIR [Concomitant]

REACTIONS (7)
  - ARTHRALGIA [None]
  - ASTHENIA [None]
  - AUTOIMMUNE HEPATITIS [None]
  - CHOLESTASIS [None]
  - HEPATOSPLENOMEGALY [None]
  - MYALGIA [None]
  - PYREXIA [None]
